FAERS Safety Report 4677999-1 (Version None)
Quarter: 2005Q2

REPORT INFORMATION
  Report Type: 
  Country: None (occurrence: None)
  Receive Date: 20050531
  Receipt Date: 20050519
  Transmission Date: 20051028
  Serious: Yes (Hospitalization)
  Sender: FDA-Public Use
  Company Number: 2005UW07803

PATIENT
  Age: 37 Year
  Sex: Male

DRUGS (1)
  1. CRESTOR [Suspect]
     Route: 048
     Dates: start: 20050411, end: 20050419

REACTIONS (3)
  - HEPATIC ENZYME INCREASED [None]
  - RENAL FAILURE [None]
  - RHABDOMYOLYSIS [None]
